FAERS Safety Report 5648702-3 (Version None)
Quarter: 2008Q1

REPORT INFORMATION
  Report Type: 
  Country: None (occurrence: None)
  Receive Date: 20080304
  Receipt Date: 20080221
  Transmission Date: 20080703
  Serious: Yes (Hospitalization)
  Sender: FDA-Public Use
  Company Number: US-AMGEN-QUU261968

PATIENT
  Sex: Female
  Weight: 61.7 kg

DRUGS (2)
  1. ENBREL [Suspect]
     Indication: RHEUMATOID ARTHRITIS
     Route: 058
     Dates: start: 20000101, end: 20061201
  2. NABUMETONE [Concomitant]
     Dates: start: 20000101

REACTIONS (4)
  - ANKLE FRACTURE [None]
  - FALL [None]
  - LOCALISED INFECTION [None]
  - POSTOPERATIVE WOUND INFECTION [None]
